FAERS Safety Report 16974672 (Version 8)
Quarter: 2019Q4

REPORT INFORMATION
  Report Type: Report from Study
  Country: None (occurrence: CH)
  Receive Date: 20191030
  Receipt Date: 20191204
  Transmission Date: 20200122
  Serious: Yes (Hospitalization, Other)
  Sender: FDA-Public Use
  Company Number: CH-ABBVIE-19K-151-2957044-00

PATIENT
  Age: 76 Year
  Sex: Male

DRUGS (23)
  1. DUODOPA [Suspect]
     Active Substance: CARBIDOPA\LEVODOPA
     Dosage: MD:6 ML,CRD: 3.6ML/H, CRD3.3 ML/H,EXTRA DOSE:3 ML24 H THERAPY
     Route: 050
     Dates: start: 20191012, end: 20191015
  2. DUODOPA [Suspect]
     Active Substance: CARBIDOPA\LEVODOPA
     Dosage: MD:6 ML, CRD: 5.2 ML/H,CRN 3.3 ML/H, EXTRA DOSE: 3 ML 24 HTHERAPY
     Route: 050
     Dates: start: 20191022, end: 201910
  3. DUODOPA [Suspect]
     Active Substance: CARBIDOPA\LEVODOPA
     Indication: PARKINSON^S DISEASE
     Route: 050
     Dates: start: 20190829, end: 20190924
  4. DUODOPA [Suspect]
     Active Substance: CARBIDOPA\LEVODOPA
     Dosage: MD:6 ML,CRD:3.6 ML/H,CRD:3 ML/H,EXTRA DOSE: 3 ML
     Route: 050
     Dates: start: 20190924, end: 2019
  5. DUODOPA [Suspect]
     Active Substance: CARBIDOPA\LEVODOPA
     Dosage: MD 2.5ML,CRD-DAY SLOW UP FROM 3.0ML/H TO 3. ML/H,CD- NIGHT 1.8ML/H,ED 1.5 ML 24H THERAPY
     Route: 050
     Dates: start: 20191025, end: 20191026
  6. DUODOPA [Suspect]
     Active Substance: CARBIDOPA\LEVODOPA
     Dosage: MD:2.5 ML, CRD: 4 ML/H, ED: 1.2 ML
     Route: 050
     Dates: start: 20191030, end: 20191030
  7. NEUPRO [Concomitant]
     Active Substance: ROTIGOTINE
     Indication: PRODUCT USED FOR UNKNOWN INDICATION
     Route: 062
  8. DUODOPA [Suspect]
     Active Substance: CARBIDOPA\LEVODOPA
     Dosage: MD: 4.9 ML,CRD:3 ML/H,CRD:3 ML/H,EXTRA DOSE: 3 ML
     Route: 050
     Dates: start: 2019, end: 20191002
  9. DUODOPA [Suspect]
     Active Substance: CARBIDOPA\LEVODOPA
     Dosage: MD:6 ML,CRD: 5.2 ML/H,CRN 3.3ML/H, EXTRA DOSE: 3 ML 24 H THERAPY
     Route: 050
     Dates: start: 20191015, end: 201910
  10. DUODOPA [Suspect]
     Active Substance: CARBIDOPA\LEVODOPA
     Dosage: MD:2.5 ML, CRD: 0.1 ML/H TO 4.3ML/H, CD NIGHT: 4.5 ML/H, ED: 2.0 ML
     Route: 050
     Dates: start: 20191101, end: 20191104
  11. DUODOPA [Suspect]
     Active Substance: CARBIDOPA\LEVODOPA
     Dosage: MD:4.8 ML, NOT SPECIFIED OTHER DOSES
     Route: 050
     Dates: start: 20191104, end: 20191128
  12. DUODOPA [Suspect]
     Active Substance: CARBIDOPA\LEVODOPA
     Dosage: MD:6 ML,CRD: 3.6 ML/H,CRD: 3 ML/H,EXTRA DOSE: 3 ML
     Route: 050
     Dates: start: 20191002, end: 201910
  13. DUODOPA [Suspect]
     Active Substance: CARBIDOPA\LEVODOPA
     Dosage: MORNING DOSE 2.5ML,CD-DAY 3.3 ML/H, CD-NIGHT 1.8ML/H, EXTRA DOSE 1.5 ML,24H
     Route: 050
     Dates: start: 20191026, end: 20191026
  14. DUODOPA [Suspect]
     Active Substance: CARBIDOPA\LEVODOPA
     Dosage: MD:2.5 ML, CRD: 0.1 ML/H TO 4.3ML/H,  ED: 2.0 ML
     Route: 050
     Dates: start: 20191101, end: 20191104
  15. DUODOPA [Suspect]
     Active Substance: CARBIDOPA\LEVODOPA
     Dosage: MD:6 ML,CRD:3.6 ML/H,CRD 3ML/H, EXTRA DOSE:3ML 24 H THERAPY
     Route: 050
     Dates: start: 20191004, end: 20191012
  16. DUODOPA [Suspect]
     Active Substance: CARBIDOPA\LEVODOPA
     Dosage: MORNING DOSE 2.5ML, CD-DAY 3.2 ML/H, CD-NIGHT 1.8ML/H, EXTRA DOSE 1.5 ML
     Route: 050
     Dates: start: 20191027, end: 20191027
  17. DUODOPA [Suspect]
     Active Substance: CARBIDOPA\LEVODOPA
     Dosage: MORNING DOSE 2.5ML, CD-DAY 3.1 ML/H, CD-NIGHT 1.8ML/H, EXTRA DOSE 1.5 ML
     Route: 050
     Dates: start: 20191028, end: 20191029
  18. DUODOPA [Suspect]
     Active Substance: CARBIDOPA\LEVODOPA
     Dosage: MD:6 ML, CRD: 4.9 ML/H,CRN 3 ML/H, EXTRA DOSE: 3ML 24H THERAPY
     Route: 050
     Dates: start: 201910, end: 20191022
  19. DUODOPA [Suspect]
     Active Substance: CARBIDOPA\LEVODOPA
     Dosage: MD:2.5 ML,CRD:FROM 2.5ML/H TO2.8ML/H,CDNIGHT:1.8ML/H,ED: 1.2 ML 24H THERAPY
     Route: 050
     Dates: start: 20191024, end: 20191024
  20. DUODOPA [Suspect]
     Active Substance: CARBIDOPA\LEVODOPA
     Dosage: MD:6 ML, NOT SPECIFIED OTHER DOSES
     Route: 050
     Dates: start: 201911
  21. DUODOPA [Suspect]
     Active Substance: CARBIDOPA\LEVODOPA
     Dosage: MD:UNKNOWN,CRD: 3 ML/H,CRD: 3 ML/H,EXTRA DOSE: 3 ML
     Route: 050
     Dates: start: 201910, end: 20191004
  22. DUODOPA [Suspect]
     Active Substance: CARBIDOPA\LEVODOPA
     Dosage: MD:2.5 ML, CRD: UP-TITRATION 4.2ML/H, CD-NIGHT 2.2ML/H, ED: 1.2 ML
     Route: 050
     Dates: start: 20191031, end: 20191031
  23. NEUPRO [Concomitant]
     Active Substance: ROTIGOTINE
     Dosage: DOSE INCREASED
     Route: 062

REACTIONS (23)
  - Poor quality sleep [Unknown]
  - Immobile [Recovered/Resolved]
  - Fatigue [Not Recovered/Not Resolved]
  - Muscle rigidity [Recovered/Resolved]
  - Parkinson^s disease [Unknown]
  - Mobility decreased [Recovered/Resolved]
  - Device programming error [Recovered/Resolved]
  - Dysarthria [Recovered/Resolved]
  - Mobility decreased [Unknown]
  - Movement disorder [Recovering/Resolving]
  - Urinary tract infection [Unknown]
  - C-reactive protein increased [Recovering/Resolving]
  - Underdose [Recovering/Resolving]
  - Therapeutic product effect decreased [Unknown]
  - Stoma site discharge [Recovered/Resolved]
  - Dysphagia [Not Recovered/Not Resolved]
  - Incorrect dose administered [Recovered/Resolved]
  - Hallucination [Unknown]
  - Device programming error [Recovered/Resolved]
  - Movement disorder [Recovered/Resolved]
  - Incorrect dose administered [Recovered/Resolved]
  - Incorrect dose administered [Recovered/Resolved]
  - Freezing phenomenon [Not Recovered/Not Resolved]

NARRATIVE: CASE EVENT DATE: 2019
